FAERS Safety Report 15612275 (Version 1)
Quarter: 2018Q4

REPORT INFORMATION
  Report Type: Spontaneous
  Country: US (occurrence: US)
  Receive Date: 20181113
  Receipt Date: 20181113
  Transmission Date: 20190205
  Serious: No
  Sender: FDA-Public Use
  Company Number: US-ENDO PHARMACEUTICALS INC-2018-040089

PATIENT
  Sex: Female

DRUGS (1)
  1. IMIPRAMINE HCL [Suspect]
     Active Substance: IMIPRAMINE HYDROCHLORIDE
     Indication: PRODUCT USED FOR UNKNOWN INDICATION
     Dosage: 25 MG, UNKNOWN
     Route: 048

REACTIONS (3)
  - Abdominal discomfort [Unknown]
  - Malaise [Unknown]
  - Anxiety [Unknown]
